FAERS Safety Report 25943352 (Version 1)
Quarter: 2025Q4

REPORT INFORMATION
  Report Type: Report from Study
  Country: CL (occurrence: CL)
  Receive Date: 20251021
  Receipt Date: 20251021
  Transmission Date: 20260117
  Serious: Yes (Other)
  Sender: JOHNSON AND JOHNSON
  Company Number: CL-JNJFOC-20250632395

PATIENT
  Age: 50 Year
  Sex: Female

DRUGS (1)
  1. SIMPONI [Suspect]
     Active Substance: GOLIMUMAB
     Indication: Colitis ulcerative
     Route: 058
     Dates: start: 20210428

REACTIONS (8)
  - Thrombosis [Unknown]
  - Bronchitis [Recovering/Resolving]
  - Haemorrhage [Unknown]
  - Hypertension [Not Recovered/Not Resolved]
  - Dyslipidaemia [Unknown]
  - Blood cholesterol increased [Unknown]
  - Blood triglycerides increased [Unknown]
  - Influenza [Unknown]

NARRATIVE: CASE EVENT DATE: 20250401
